FAERS Safety Report 17368211 (Version 2)
Quarter: 2021Q3

REPORT INFORMATION
  Report Type: Report from Study
  Country: None (occurrence: BR)
  Receive Date: 20200204
  Receipt Date: 20210727
  Transmission Date: 20211014
  Serious: Yes (Other)
  Sender: FDA-Public Use
  Company Number: BR-ABBVIE-20K-020-3258532-00

PATIENT
  Sex: Female
  Weight: 64 kg

DRUGS (7)
  1. HUMIRA [Suspect]
     Active Substance: ADALIMUMAB
     Dosage: 120 MILLIGRAM BUT WAS UNSURE?LOADING DOSE
     Route: 058
  2. ATORVASTATIN [Concomitant]
     Active Substance: ATORVASTATIN
     Indication: BLOOD CHOLESTEROL INCREASED
  3. HUMIRA [Suspect]
     Active Substance: ADALIMUMAB
     Route: 058
     Dates: end: 20191221
  4. MESALAZINE [Concomitant]
     Active Substance: MESALAMINE
     Dosage: 2 IN THE MORNING, 2 IN THE AFTERNOON
     Route: 048
  5. AZATHIOPRINE. [Concomitant]
     Active Substance: AZATHIOPRINE
     Indication: CROHN^S DISEASE
  6. MESALAZINE [Concomitant]
     Active Substance: MESALAMINE
     Indication: CROHN^S DISEASE
     Route: 048
  7. HUMIRA [Suspect]
     Active Substance: ADALIMUMAB
     Indication: CROHN^S DISEASE
     Dosage: LOADING DOSE
     Route: 058
     Dates: start: 20121130, end: 20121130

REACTIONS (17)
  - Unevaluable event [Unknown]
  - Enterocolitis [Unknown]
  - Bursitis [Not Recovered/Not Resolved]
  - Cartilage injury [Not Recovered/Not Resolved]
  - Anal fissure [Recovered/Resolved]
  - Intestinal haemorrhage [Not Recovered/Not Resolved]
  - Drug ineffective [Unknown]
  - Haemorrhage [Not Recovered/Not Resolved]
  - Dyschezia [Not Recovered/Not Resolved]
  - Tendonitis [Not Recovered/Not Resolved]
  - Fear [Unknown]
  - Carpal tunnel syndrome [Not Recovered/Not Resolved]
  - Osteoarthritis [Not Recovered/Not Resolved]
  - Anal fissure [Not Recovered/Not Resolved]
  - Anorectal discomfort [Not Recovered/Not Resolved]
  - Myalgia [Not Recovered/Not Resolved]
  - Gastrointestinal infection [Not Recovered/Not Resolved]

NARRATIVE: CASE EVENT DATE: 2019
